FAERS Safety Report 5046214-1 (Version None)
Quarter: 2006Q2

REPORT INFORMATION
  Report Type: 
  Country: None (occurrence: None)
  Receive Date: 20060629
  Receipt Date: 20060615
  Transmission Date: 20061013
  Serious: Yes (Other)
  Sender: FDA-Public Use
  Company Number: 2006076247

PATIENT
  Sex: Male
  Weight: 81.6475 kg

DRUGS (16)
  1. VIAGRA [Suspect]
     Indication: ERECTILE DYSFUNCTION
     Dosage: 100 MG AS NECESSARY ORAL
     Route: 048
  2. CARDIZEM [Concomitant]
  3. PLAVIX [Concomitant]
  4. ACEON [Concomitant]
  5. OMACOR (OMEGA-3 MARINE TRYGLICERIDES) [Concomitant]
  6. WELCHOL [Concomitant]
  7. ULTRACET [Concomitant]
  8. CELEBREX [Concomitant]
  9. COSAMIN DS (ASCORBIC ACID, CHONDROITIN SULFATE SODIUM, GLUCOSAMINE HYD [Concomitant]
  10. CRESTOR [Concomitant]
  11. ZETIA [Concomitant]
  12. MONTELEUKAST (MONTELEUKAST) [Concomitant]
  13. ASPIRIN [Concomitant]
  14. COENZYME Q10 [Concomitant]
  15. MULTIVITAMIN [Concomitant]
  16. VITAMINS (VITAMINS) [Concomitant]

REACTIONS (3)
  - DRUG EFFECT DECREASED [None]
  - PHARMACEUTICAL PRODUCT COMPLAINT [None]
  - STENT PLACEMENT [None]
